FAERS Safety Report 18311896 (Version 2)
Quarter: 2021Q3

REPORT INFORMATION
  Report Type: Spontaneous
  Country: CA (occurrence: CA)
  Receive Date: 20200925
  Receipt Date: 20210904
  Transmission Date: 20211014
  Serious: Yes (Hospitalization, Other)
  Sender: FDA-Public Use
  Company Number: CA-ACCORD-202266

PATIENT
  Age: 49 Year
  Sex: Female
  Weight: 101 kg

DRUGS (13)
  1. IRINOTECAN [Suspect]
     Active Substance: IRINOTECAN
     Indication: PANCREATIC CARCINOMA
     Dosage: SOLUTION INTRAVENOUS
     Route: 042
  2. SENNA ALEXANDRINA [Concomitant]
     Active Substance: SENNA LEAF
  3. RABEPRAZOLE/RABEPRAZOLE SODIUM [Concomitant]
     Active Substance: RABEPRAZOLE SODIUM
  4. PEGFILGRASTIM [Concomitant]
     Active Substance: PEGFILGRASTIM
  5. PARACETAMOL [Concomitant]
     Active Substance: ACETAMINOPHEN
  6. OXALIPLATIN. [Suspect]
     Active Substance: OXALIPLATIN
     Indication: PANCREATIC CARCINOMA
     Route: 042
  7. FOLINIC ACID [Concomitant]
     Active Substance: LEUCOVORIN
  8. DEXAMETHASONE. [Concomitant]
     Active Substance: DEXAMETHASONE
     Dosage: LIQUID INTRA? ARTICULAR
     Route: 014
  9. ONDANSETRON [Concomitant]
     Active Substance: ONDANSETRON
  10. LOPERAMIDE [Concomitant]
     Active Substance: LOPERAMIDE
  11. DIPHENHYDRAMINE. [Concomitant]
     Active Substance: DIPHENHYDRAMINE
  12. ATROPINE. [Concomitant]
     Active Substance: ATROPINE
  13. CALCIUM [Concomitant]
     Active Substance: CALCIUM

REACTIONS (4)
  - Diarrhoea [Unknown]
  - Off label use [Unknown]
  - Resuscitation [Unknown]
  - Vomiting [Unknown]
